FAERS Safety Report 8819416 (Version 1)
Quarter: 2012Q4

REPORT INFORMATION
  Report Type: Spontaneous
  Country: US (occurrence: None)
  Receive Date: 20121004
  Receipt Date: 20121004
  Transmission Date: 20130627
  Serious: No
  Sender: FDA-Public Use
  Company Number: None

PATIENT
  Age: 49 Year
  Sex: Female
  Weight: 70.31 kg

DRUGS (2)
  1. LO LOESTRIN FE [Suspect]
     Indication: PERIMENOPAUSAL SYMPTOMS
     Dosage: 1x/day po
     Route: 048
     Dates: start: 20120501, end: 20120925
  2. LO LOESTRIN FE [Suspect]
     Indication: MOOD SWINGS
     Dosage: 1x/day po
     Route: 048
     Dates: start: 20120501, end: 20120925

REACTIONS (4)
  - Hypoaesthesia [None]
  - Paraesthesia [None]
  - Myalgia [None]
  - Pain in extremity [None]
